FAERS Safety Report 4372074-8 (Version None)
Quarter: 2004Q2

REPORT INFORMATION
  Report Type: 
  Country: None (occurrence: None)
  Receive Date: 20040602
  Receipt Date: 20040519
  Transmission Date: 20050107
  Serious: Yes (Life-Threatening)
  Sender: FDA-Public Use
  Company Number: JP-JNJFOC-20040501480

PATIENT
  Age: 76 Year
  Sex: Female
  Weight: 45.6 kg

DRUGS (15)
  1. REMICADE [Suspect]
     Indication: RHEUMATOID ARTHRITIS
     Dosage: 1 IN 1 AS NECESSARY, INTRAVENOUS DRIP; 140 MG, 1 IN 1 AS NECESSARY, INTRAVENOUS DRIP
     Route: 041
     Dates: start: 20040324, end: 20040324
  2. REMICADE [Suspect]
     Indication: RHEUMATOID ARTHRITIS
     Dosage: 1 IN 1 AS NECESSARY, INTRAVENOUS DRIP; 140 MG, 1 IN 1 AS NECESSARY, INTRAVENOUS DRIP
     Route: 041
     Dates: start: 20040407, end: 20040407
  3. RHEUMATREX [Suspect]
     Indication: RHEUMATOID ARTHRITIS
     Dosage: 6 MG, IN 1 WEEK, ORAL; 8 MG, IN 1 WEEK, ORAL
     Route: 048
     Dates: start: 19940201, end: 20040310
  4. RHEUMATREX [Suspect]
     Indication: RHEUMATOID ARTHRITIS
     Dosage: 6 MG, IN 1 WEEK, ORAL; 8 MG, IN 1 WEEK, ORAL
     Route: 048
     Dates: start: 20040310, end: 20040506
  5. ISONIAZID [Concomitant]
  6. PREDNISOLONE [Concomitant]
  7. LOXONIN (LOXOPROFEN SODIUM) TABLETS [Concomitant]
  8. ROCALTROL (CALCITROL) TABLETS [Concomitant]
  9. HALFDIGOXIN (DIGOXIN) TABLETS [Concomitant]
  10. CIBENOL (CIBENZOLINE SUCCINATE) TABLETS [Concomitant]
  11. RENDORMIN D (ALL OTHER THERAPEUTIC PRODUCTS) TABLETS [Concomitant]
  12. FOLIAMIN (FOLIC ACID) TABLETS [Concomitant]
  13. JUVELA (TOCOPHEROL) TABLETS [Concomitant]
  14. WARFARIN (WARFARIN) TABLETS [Concomitant]
  15. MICARDIS (TELMISARTAN) CAPSULES [Concomitant]

REACTIONS (7)
  - ANOREXIA [None]
  - ASTHMA [None]
  - DRUG INTERACTION [None]
  - INTERSTITIAL LUNG DISEASE [None]
  - MALAISE [None]
  - PNEUMOCYSTIS CARINII PNEUMONIA [None]
  - PNEUMONITIS [None]
